FAERS Safety Report 7014690-0 (Version None)
Quarter: 2010Q3

REPORT INFORMATION
  Report Type: 
  Country: None (occurrence: None)
  Receive Date: 20100927
  Receipt Date: 20100917
  Transmission Date: 20110219
  Serious: Yes (Life-Threatening, Hospitalization, Other)
  Sender: FDA-Public Use
  Company Number: DE-ALEXION-A201000888

PATIENT

DRUGS (8)
  1. SOLIRIS [Suspect]
     Indication: PAROXYSMAL NOCTURNAL HAEMOGLOBINURIA
     Dosage: 600 MG, UNK
     Route: 042
     Dates: start: 20070912, end: 20071001
  2. SOLIRIS [Suspect]
     Dosage: 900 MG, UNK
     Route: 042
     Dates: start: 20071001, end: 20100629
  3. EXJADE [Concomitant]
     Indication: SERUM FERRITIN INCREASED
     Dosage: 500 MG, TID
     Route: 048
     Dates: start: 20100201
  4. DELIX                              /00885601/ [Concomitant]
     Indication: CARDIAC FAILURE
     Dosage: 5 MG, UNK
     Route: 048
  5. METOHEXAL SUCC [Concomitant]
     Indication: HYPERTENSION
     Dosage: 95 MG, UNK
     Route: 048
  6. PANTOZOL                           /01263202/ [Concomitant]
     Indication: GASTRITIS PROPHYLAXIS
     Dosage: UNK
     Dates: start: 20100401
  7. PANTOZOL                           /01263202/ [Concomitant]
     Indication: GASTRIC HAEMORRHAGE
  8. PREDNISOLON                        /00016201/ [Concomitant]
     Indication: WARM TYPE HAEMOLYTIC ANAEMIA
     Dosage: 7.5 MG, UNK
     Dates: start: 20090101

REACTIONS (7)
  - DIVERTICULITIS [None]
  - GASTROINTESTINAL PERFORATION [None]
  - NOSOCOMIAL INFECTION [None]
  - PERITONITIS [None]
  - SEPSIS [None]
  - SUTURE RUPTURE [None]
  - VESICAL FISTULA [None]
